FAERS Safety Report 5087059-6 (Version None)
Quarter: 2006Q3

REPORT INFORMATION
  Report Type: 
  Country: None (occurrence: None)
  Receive Date: 20060821
  Receipt Date: 20060810
  Transmission Date: 20061208
  Serious: Yes (Other)
  Sender: FDA-Public Use
  Company Number: 2006097790

PATIENT
  Sex: Female

DRUGS (1)
  1. CABERGOLINE [Suspect]
     Indication: HYPERPROLACTINAEMIA
     Dosage: 1 IN 1 D

REACTIONS (4)
  - ACCIDENTAL OVERDOSE [None]
  - BLOOD PROLACTIN DECREASED [None]
  - BREAST CYST [None]
  - INAPPROPRIATE SCHEDULE OF DRUG ADMINISTRATION [None]
